FAERS Safety Report 4980958-2 (Version None)
Quarter: 2006Q2

REPORT INFORMATION
  Report Type: 
  Country: None (occurrence: None)
  Receive Date: 20060418
  Receipt Date: 20060330
  Transmission Date: 20061013
  Serious: Yes (Other)
  Sender: FDA-Public Use
  Company Number: US200602000097

PATIENT
  Age: 70 Year
  Sex: Female

DRUGS (6)
  1. FORTEO [Suspect]
     Indication: OSTEOPOROSIS
     Dates: start: 20050627, end: 20051101
  2. FORTEO [Concomitant]
  3. ASA (ASPIRIN (ACETYLSALICYLIC ACID) [Concomitant]
  4. FOSAMAX [Concomitant]
  5. MVI (VITAMINS NOS) [Concomitant]
  6. CALCIUM (CALCIUM) [Concomitant]

REACTIONS (4)
  - ABDOMINAL PAIN LOWER [None]
  - CHROMATURIA [None]
  - OBSTRUCTIVE UROPATHY [None]
  - PAIN IN EXTREMITY [None]
